FAERS Safety Report 7831896-9 (Version None)
Quarter: 2011Q4

REPORT INFORMATION
  Report Type: 
  Country: None (occurrence: None)
  Receive Date: 20111021
  Receipt Date: 20111011
  Transmission Date: 20120403
  Serious: Yes (Hospitalization)
  Sender: FDA-Public Use
  Company Number: JP-ALLERGAN-1113536US

PATIENT
  Age: 58 Year
  Sex: Female

DRUGS (4)
  1. ALSETIN [Concomitant]
     Indication: HYPERLIPIDAEMIA
     Route: 048
  2. BOTOX [Suspect]
     Dosage: UNK UNITS, SINGLE
     Route: 030
     Dates: start: 20101201, end: 20101201
  3. LISINOPRIL [Concomitant]
     Indication: HYPERTENSION
     Route: 048
  4. BOTOX [Suspect]
     Indication: MUSCLE SPASMS
     Dosage: 337.5 UNITS, SINGLE
     Route: 030
     Dates: start: 20110909, end: 20110909

REACTIONS (12)
  - GAMMA-GLUTAMYLTRANSFERASE ABNORMAL [None]
  - PALPITATIONS [None]
  - TACHYARRHYTHMIA [None]
  - MALAISE [None]
  - BLOOD BILIRUBIN ABNORMAL [None]
  - NAUSEA [None]
  - ALANINE AMINOTRANSFERASE ABNORMAL [None]
  - WHITE BLOOD CELL COUNT ABNORMAL [None]
  - HEPATOMEGALY [None]
  - ASPARTATE AMINOTRANSFERASE ABNORMAL [None]
  - BLOOD ALKALINE PHOSPHATASE ABNORMAL [None]
  - BLOOD LACTATE DEHYDROGENASE ABNORMAL [None]
